FAERS Safety Report 18410021 (Version 1)
Quarter: 2020Q4

REPORT INFORMATION
  Report Type: Spontaneous
  Country: US (occurrence: US)
  Receive Date: 20201021
  Receipt Date: 20201021
  Transmission Date: 20210114
  Serious: Yes (Life-Threatening, Hospitalization)
  Sender: FDA-Public Use
  Company Number: US-ELI_LILLY_AND_COMPANY-US90111150A

PATIENT
  Age: 14 Year
  Sex: Female

DRUGS (3)
  1. PROZAC [Suspect]
     Active Substance: FLUOXETINE HYDROCHLORIDE
     Indication: OBSESSIVE-COMPULSIVE DISORDER
     Dosage: 20 MG, UNKNOWN
     Route: 048
  2. PROZAC [Suspect]
     Active Substance: FLUOXETINE HYDROCHLORIDE
     Dosage: 40 MG, DAILY
     Route: 065
  3. IBUPROFEN. [Suspect]
     Active Substance: IBUPROFEN
     Indication: SUICIDE ATTEMPT
     Dosage: 23 DOSAGE FORM, UNKNOWN
     Route: 065

REACTIONS (16)
  - Feeling guilty [Unknown]
  - Product dose omission issue [Unknown]
  - Intentional self-injury [Unknown]
  - Suicide attempt [Unknown]
  - Confusional state [Unknown]
  - Insomnia [Unknown]
  - Obsessive-compulsive personality disorder [Unknown]
  - Impulsive behaviour [Unknown]
  - Borderline personality disorder [Unknown]
  - Depression [Unknown]
  - Tension [Unknown]
  - Suicidal ideation [Unknown]
  - Agitation [Unknown]
  - Anger [Unknown]
  - Irritability [Unknown]
  - Disturbance in attention [Unknown]
